FAERS Safety Report 8027646-6 (Version None)
Quarter: 2012Q1

REPORT INFORMATION
  Report Type: 
  Country: None (occurrence: None)
  Receive Date: 20120105
  Receipt Date: 20120105
  Transmission Date: 20120608
  Serious: Yes (Hospitalization)
  Sender: FDA-Public Use
  Company Number: None

PATIENT
  Age: 64 Year
  Sex: Male
  Weight: 102.7 kg

DRUGS (2)
  1. NAPROXEN [Suspect]
     Indication: PAIN
     Dosage: 500 MG BID PO
     Route: 048
     Dates: start: 20111115, end: 20111212
  2. IBUPROFEN [Suspect]
     Indication: PAIN
     Dosage: 400 MG ONCE PO
     Route: 048
     Dates: start: 20111219, end: 20111219

REACTIONS (3)
  - FATIGUE [None]
  - GASTRIC HAEMORRHAGE [None]
  - GASTROINTESTINAL HAEMORRHAGE [None]
